FAERS Safety Report 7306234-0 (Version None)
Quarter: 2011Q1

REPORT INFORMATION
  Report Type: 
  Country: None (occurrence: None)
  Receive Date: 20110222
  Receipt Date: 20110217
  Transmission Date: 20110831
  Serious: Yes (Life-Threatening, Hospitalization)
  Sender: FDA-Public Use
  Company Number: PHHY2011ES04374

PATIENT
  Sex: Male
  Weight: 85 kg

DRUGS (5)
  1. DOXORUBICIN [Suspect]
  2. PREDNISONE [Suspect]
  3. CYCLOPHOSPHAMIDE [Suspect]
  4. ZARZIO [Suspect]
     Dosage: 30 MU/0.5 ML (30 MU/0.5 ML)
     Route: 058
  5. VINCRISTINE [Suspect]

REACTIONS (7)
  - APLASIA [None]
  - INCORRECT DOSE ADMINISTERED [None]
  - NEUTROPHIL COUNT DECREASED [None]
  - RESPIRATORY TRACT INFECTION [None]
  - AGRANULOCYTOSIS [None]
  - DRUG INEFFECTIVE [None]
  - FEBRILE NEUTROPENIA [None]
